FAERS Safety Report 20444636 (Version 1)
Quarter: 2022Q1

REPORT INFORMATION
  Report Type: Report from Study
  Country: US (occurrence: US)
  Receive Date: 20220208
  Receipt Date: 20220208
  Transmission Date: 20220424
  Serious: Yes (Hospitalization, Other)
  Sender: FDA-Public Use
  Company Number: US-ASTELLAS-2019US003658

PATIENT
  Sex: Male

DRUGS (17)
  1. ENZALUTAMIDE [Suspect]
     Active Substance: ENZALUTAMIDE
     Indication: Prostate cancer
     Dosage: 160 MG (4 CAPSULES), ONCE DAILY
     Route: 048
  2. ENZALUTAMIDE [Suspect]
     Active Substance: ENZALUTAMIDE
     Dosage: UNK UNK, UNKNOWN FREQ.
     Route: 048
  3. ALLOPURINOL [Concomitant]
     Active Substance: ALLOPURINOL
     Indication: Product used for unknown indication
     Route: 065
  4. BREO ELLIPTA [Concomitant]
     Active Substance: FLUTICASONE FUROATE\VILANTEROL TRIFENATATE
     Indication: Product used for unknown indication
     Dosage: 25MC, UNKNOWN FREQ.
     Route: 065
  5. CALCIUM CITRAT [Concomitant]
     Indication: Product used for unknown indication
     Dosage: 500M UNKNOWN FREQ.
     Route: 065
  6. COENZYME Q10 [Concomitant]
     Active Substance: DIETARY SUPPLEMENT\UBIDECARENONE
     Indication: Product used for unknown indication
     Route: 065
  7. DICLOFENAC POTASSIUM [Concomitant]
     Active Substance: DICLOFENAC POTASSIUM
     Indication: Product used for unknown indication
     Route: 065
  8. DIOVAN HCT [Concomitant]
     Active Substance: HYDROCHLOROTHIAZIDE\VALSARTAN
     Indication: Product used for unknown indication
     Route: 065
  9. ELIGARD [Concomitant]
     Active Substance: LEUPROLIDE ACETATE
     Indication: Product used for unknown indication
     Route: 065
  10. FLONASE [Concomitant]
     Active Substance: FLUTICASONE PROPIONATE
     Indication: Product used for unknown indication
     Dosage: 50 ?G/AC, UNKNOWN FREQ.
     Route: 065
  11. PLAVIX [Concomitant]
     Active Substance: CLOPIDOGREL BISULFATE
     Indication: Product used for unknown indication
     Route: 065
  12. PRAVASTATIN [Concomitant]
     Active Substance: PRAVASTATIN
     Indication: Product used for unknown indication
     Route: 065
  13. PROBIOTICS NOS [Concomitant]
     Active Substance: PROBIOTICS NOS
     Indication: Product used for unknown indication
     Dosage: UNK UNK, UNKNOWN FREQ.
     Route: 065
  14. SPIRIVA [Concomitant]
     Active Substance: TIOTROPIUM BROMIDE MONOHYDRATE
     Indication: Product used for unknown indication
     Route: 065
  15. VITAMIN B12 [Concomitant]
     Active Substance: CYANOCOBALAMIN
     Indication: Product used for unknown indication
     Route: 065
  16. VITAMIN D [Concomitant]
     Active Substance: VITAMIN D NOS
     Indication: Product used for unknown indication
     Dosage: 2000 UNIT, UNKNOWN FREQ.
     Route: 065
  17. UNSPECIFIED INGREDIENT [Concomitant]
     Active Substance: UNSPECIFIED INGREDIENT
     Indication: Product used for unknown indication
     Dosage: UNK UNK, UNKNOWN FREQ.
     Route: 065

REACTIONS (8)
  - Cerebrovascular accident [Not Recovered/Not Resolved]
  - Transient ischaemic attack [Recovered/Resolved]
  - Balance disorder [Not Recovered/Not Resolved]
  - Delirium [Recovered/Resolved]
  - Encephalitis [Recovered/Resolved]
  - Confusional state [Not Recovered/Not Resolved]
  - Fatigue [Not Recovered/Not Resolved]
  - Fall [Not Recovered/Not Resolved]
